FAERS Safety Report 4517113-6 (Version None)
Quarter: 2004Q4

REPORT INFORMATION
  Report Type: 
  Country: None (occurrence: None)
  Receive Date: 20041007
  Receipt Date: 20040723
  Transmission Date: 20050328
  Serious: Yes (Hospitalization)
  Sender: FDA-Public Use
  Company Number: 233654K04USA

PATIENT
  Age: 28 Year
  Sex: Female

DRUGS (2)
  1. REBIF [Suspect]
     Indication: MULTIPLE SCLEROSIS
     Dates: start: 20031206, end: 20040301
  2. NOVANTRONE [Concomitant]

REACTIONS (3)
  - AGGRESSION [None]
  - MULTIPLE SCLEROSIS RELAPSE [None]
  - PARANOIA [None]
